FAERS Safety Report 4407243-1 (Version None)
Quarter: 2004Q3

REPORT INFORMATION
  Report Type: 
  Country: None (occurrence: None)
  Receive Date: 20040726
  Receipt Date: 20040609
  Transmission Date: 20050211
  Serious: Yes (Death, Hospitalization)
  Sender: FDA-Public Use
  Company Number: 200415965GDDC

PATIENT
  Age: 63 Year
  Sex: Female

DRUGS (5)
  1. ARAVA [Suspect]
     Indication: ARTHRITIS
     Route: 048
     Dates: start: 20020701, end: 20040511
  2. METHOTREXATE [Concomitant]
     Indication: ARTHRITIS
     Route: 048
     Dates: start: 20030201, end: 20040511
  3. CELECOXIB [Concomitant]
     Indication: ARTHRITIS
     Route: 048
     Dates: start: 20030201, end: 20040511
  4. PREDNISONE [Concomitant]
     Indication: ARTHRITIS
     Route: 048
     Dates: start: 20020701, end: 20040511
  5. ALENDRONATE SODIUM [Concomitant]
     Indication: OSTEOPOROSIS
     Route: 048
     Dates: start: 20020701, end: 20040511

REACTIONS (7)
  - BRAIN OEDEMA [None]
  - CAROTID ARTERY ANEURYSM [None]
  - CEREBRAL HAEMORRHAGE [None]
  - HYPERTENSION [None]
  - INTRACRANIAL ANEURYSM [None]
  - INTRAVENTRICULAR HAEMORRHAGE [None]
  - SUBARACHNOID HAEMORRHAGE [None]
